FAERS Safety Report 7852373-5 (Version None)
Quarter: 2011Q4

REPORT INFORMATION
  Report Type: 
  Country: None (occurrence: None)
  Receive Date: 20111026
  Receipt Date: 20111014
  Transmission Date: 20120403
  Serious: Yes (Death)
  Sender: FDA-Public Use
  Company Number: US-SANOFI-AVENTIS-2011SA054847

PATIENT
  Age: 69 Year
  Sex: Male
  Weight: 87.2 kg

DRUGS (13)
  1. ASPIRIN [Concomitant]
     Dates: start: 20080625, end: 20110530
  2. SOLOSTAR [Suspect]
  3. INSULIN PEN NOS [Suspect]
  4. ATORVASTATIN [Concomitant]
     Dates: start: 20060101, end: 20110530
  5. FISH OIL [Concomitant]
     Dates: start: 20091001, end: 20110530
  6. VIAGRA [Concomitant]
     Dates: start: 20091019, end: 20110530
  7. OMEPRAZOLE [Concomitant]
     Dates: start: 20101101, end: 20110530
  8. EFFEXOR [Concomitant]
     Dates: start: 20101101, end: 20110530
  9. LANTUS [Suspect]
     Indication: TYPE 2 DIABETES MELLITUS
     Dosage: DOSE:42 UNIT(S)
     Dates: start: 20101220
  10. INSULIN LISPRO [Suspect]
     Indication: TYPE 2 DIABETES MELLITUS
     Dosage: 9 U PRE BREAKFAST , 7 U PRE DINNER, OTHER, SUBCUTANEOUS
     Dates: start: 20101220
  11. ESOMEPRAZOLE SODIUM [Concomitant]
     Dates: start: 20010101, end: 20110530
  12. NIASPAN [Concomitant]
     Dates: start: 20060101, end: 20110530
  13. LEXAPRO [Concomitant]
     Dates: start: 20060101, end: 20110530

REACTIONS (1)
  - ROAD TRAFFIC ACCIDENT [None]
